FAERS Safety Report 11178751 (Version 2)
Quarter: 2015Q4

REPORT INFORMATION
  Report Type: Spontaneous
  Country: US (occurrence: US)
  Receive Date: 20150610
  Receipt Date: 20151210
  Transmission Date: 20160304
  Serious: No
  Sender: FDA-Public Use
  Company Number: US-ASTRAZENECA-2015SE53355

PATIENT
  Age: 69 Year
  Sex: Female
  Weight: 88.5 kg

DRUGS (8)
  1. PULMICORT FLEXHALER [Suspect]
     Active Substance: BUDESONIDE
     Indication: CHRONIC OBSTRUCTIVE PULMONARY DISEASE
     Route: 055
  2. PULMICORT FLEXHALER [Suspect]
     Active Substance: BUDESONIDE
     Indication: ASTHMA
     Route: 055
  3. MONTELUKAST [Concomitant]
     Active Substance: MONTELUKAST SODIUM
  4. TRIAMTERENE HCTZ [Concomitant]
     Active Substance: HYDROCHLOROTHIAZIDE\TRIAMTERENE
  5. BROVANA [Suspect]
     Active Substance: ARFORMOTEROL TARTRATE
     Indication: ASTHMA
     Dosage: 15UG/ 2ML, BID, INHALATION
     Route: 065
     Dates: start: 201501
  6. BROVANA [Suspect]
     Active Substance: ARFORMOTEROL TARTRATE
     Indication: CHRONIC OBSTRUCTIVE PULMONARY DISEASE
     Dosage: 15UG/ 2ML, BID, INHALATION
     Route: 065
     Dates: start: 201501
  7. VITAMIN D [Concomitant]
     Active Substance: CHOLECALCIFEROL
  8. CRESTOR [Suspect]
     Active Substance: ROSUVASTATIN CALCIUM
     Route: 048
     Dates: start: 201505

REACTIONS (18)
  - Goitre [Unknown]
  - Dysphonia [Recovered/Resolved]
  - Abdominal pain upper [Unknown]
  - Inguinal hernia [Unknown]
  - Pain in extremity [Unknown]
  - Constipation [Unknown]
  - Dyspnoea [Unknown]
  - Depression [Unknown]
  - Paraesthesia [Recovered/Resolved]
  - Drug administration error [Unknown]
  - Abdominal pain upper [Recovered/Resolved]
  - Arthralgia [Unknown]
  - Cough [Unknown]
  - Groin pain [Unknown]
  - Diarrhoea [Recovered/Resolved]
  - Hypoaesthesia [Unknown]
  - Respiratory tract congestion [Unknown]
  - Back pain [Unknown]

NARRATIVE: CASE EVENT DATE: 201502
